FAERS Safety Report 17806796 (Version 1)
Quarter: 2020Q2

REPORT INFORMATION
  Report Type: Spontaneous
  Country: US (occurrence: US)
  Receive Date: 20200519
  Receipt Date: 20200519
  Transmission Date: 20200714
  Serious: No
  Sender: FDA-Public Use
  Company Number: None

PATIENT
  Age: 44 Year
  Sex: Female
  Weight: 116.55 kg

DRUGS (10)
  1. SPIRONOLACTONE TABS 50MG [Suspect]
     Active Substance: SPIRONOLACTONE
     Indication: HYPERTENSION
     Route: 048
  2. IRBESARTAN. [Concomitant]
     Active Substance: IRBESARTAN
  3. IBUPROFEN. [Concomitant]
     Active Substance: IBUPROFEN
  4. HYDROCODONE [Concomitant]
     Active Substance: HYDROCODONE
  5. LEVOTHYROXINE. [Concomitant]
     Active Substance: LEVOTHYROXINE
  6. UNISOM (DIPHENHYDRAMINE) [Concomitant]
  7. SPIRONOLACTONE. [Concomitant]
     Active Substance: SPIRONOLACTONE
  8. CYCLOBENZAPRINE. [Concomitant]
     Active Substance: CYCLOBENZAPRINE
  9. METOPROLOL. [Concomitant]
     Active Substance: METOPROLOL
  10. MELATONIN [Concomitant]
     Active Substance: MELATONIN

REACTIONS (3)
  - Product odour abnormal [None]
  - Product complaint [None]
  - Throat irritation [None]

NARRATIVE: CASE EVENT DATE: 20200206
